FAERS Safety Report 17405733 (Version 1)
Quarter: 2020Q1

REPORT INFORMATION
  Report Type: Spontaneous
  Country: US (occurrence: US)
  Receive Date: 20200127
  Receipt Date: 20200127
  Transmission Date: 20200409
  Serious: No
  Sender: FDA-Public Use
  Company Number: None

PATIENT
  Age: 70 Year
  Sex: Male

DRUGS (1)
  1. OSELTAMIVIR (OSELTAMIVIR PO4 30MG CAP) [Suspect]
     Active Substance: OSELTAMIVIR PHOSPHATE
     Indication: ANTIVIRAL PROPHYLAXIS
     Dosage: ?          OTHER FREQUENCY:AM;?
     Route: 048
     Dates: start: 20200121, end: 20200123

REACTIONS (2)
  - Agitation [None]
  - Confusional state [None]

NARRATIVE: CASE EVENT DATE: 20200122
